FAERS Safety Report 9204900 (Version 1)
Quarter: 2013Q1

REPORT INFORMATION
  Report Type: Spontaneous
  Country: US (occurrence: None)
  Receive Date: 20120709
  Receipt Date: 20120709
  Transmission Date: 20140127
  Serious: Yes (Disabling, Other)
  Sender: FDA-Public Use
  Company Number: PHEH2011US08413

PATIENT
  Age: 68 Year
  Sex: Female

DRUGS (4)
  1. GLEEVEC [Suspect]
     Indication: CHROMOSOME ANALYSIS ABNORMAL
     Route: 048
     Dates: start: 20111027
  2. METHOTREXATE (NGX) (METHOTREXATE) SOLUTION FOR INJECTION [Suspect]
     Dosage: SOLUTION FOR INFUSION
     Dates: start: 20111028, end: 20111029
  3. LEUCORVIN (FOLNIC ACID) [Concomitant]
  4. OMEPRAZOLE (OMEPRAZOLE) [Concomitant]

REACTIONS (9)
  - Vasoconstriction [None]
  - Mesenteric fibrosis [None]
  - Tubulointerstitial nephritis [None]
  - Renal failure acute [None]
  - Pneumonia [None]
  - Renal impairment [None]
  - Urine output decreased [None]
  - Blood creatine increased [None]
  - Renal tubular disorder [None]
